FAERS Safety Report 7585438-6 (Version None)
Quarter: 2011Q3

REPORT INFORMATION
  Report Type: 
  Country: None (occurrence: None)
  Receive Date: 20110701
  Receipt Date: 20110614
  Transmission Date: 20111222
  Serious: Yes (Hospitalization)
  Sender: FDA-Public Use
  Company Number: US-BAYER-201016992NA

PATIENT
  Sex: Female
  Weight: 93.424 kg

DRUGS (10)
  1. YAZ [Suspect]
     Indication: CONTRACEPTION
     Route: 048
     Dates: start: 20080101, end: 20090501
  2. YAZ [Suspect]
     Indication: ACNE
  3. ANTIBIOTICS [Concomitant]
     Dosage: UNK
     Dates: start: 20000101, end: 20090101
  4. SERTRALINE HYDROCHLORIDE [Concomitant]
     Indication: DEPRESSION
     Dosage: UNK
     Dates: start: 20090407
  5. TEMAZEPAM [Concomitant]
     Indication: SLEEP DISORDER THERAPY
     Dosage: UNK
     Dates: start: 20090402
  6. SULFAMETHOXAZOLE AND TRIMETHOPRIM DOUBLE STRENGTH [Concomitant]
     Dosage: UNK
     Dates: start: 20090424
  7. YAZ [Suspect]
  8. ALBUTEROL SULFATE AUTOHALER [Concomitant]
     Dosage: UNK
     Dates: start: 20090101
  9. YAZ [Suspect]
     Indication: PREMENSTRUAL SYNDROME
  10. CLONAZEPAM [Concomitant]
     Indication: MUSCLE RELAXANT THERAPY
     Dosage: UNK
     Dates: start: 20090407

REACTIONS (5)
  - DYSPNOEA [None]
  - CHOLECYSTITIS CHRONIC [None]
  - GALLBLADDER DISORDER [None]
  - ABDOMINAL PAIN [None]
  - CHOLELITHIASIS [None]
